FAERS Safety Report 6824697-1 (Version None)
Quarter: 2010Q3

REPORT INFORMATION
  Report Type: 
  Country: None (occurrence: None)
  Receive Date: 20100708
  Receipt Date: 20061107
  Transmission Date: 20110219
  Serious: No
  Sender: FDA-Public Use
  Company Number: US-PFIZER INC-2006139762

PATIENT
  Sex: Male
  Weight: 77.56 kg

DRUGS (6)
  1. CHANTIX [Suspect]
     Indication: SMOKING CESSATION THERAPY
     Route: 048
     Dates: start: 20061104, end: 20061106
  2. NEURONTIN [Concomitant]
  3. CALCIUM CARBONATE [Concomitant]
  4. PREVACID [Concomitant]
  5. COZAAR [Concomitant]
  6. CRESTOR [Concomitant]

REACTIONS (2)
  - ABDOMINAL DISCOMFORT [None]
  - DIARRHOEA [None]
